FAERS Safety Report 8187259-2 (Version None)
Quarter: 2012Q1

REPORT INFORMATION
  Report Type: 
  Country: None (occurrence: None)
  Receive Date: 20120306
  Receipt Date: 20120229
  Transmission Date: 20120608
  Serious: Yes (Other)
  Sender: FDA-Public Use
  Company Number: NO-ROCHE-1044711

PATIENT
  Sex: Female

DRUGS (5)
  1. MABTHERA [Suspect]
     Indication: RHEUMATOID ARTHRITIS
     Dates: start: 20110322, end: 20110414
  2. PREDNISOLONE [Concomitant]
     Indication: RHEUMATOID ARTHRITIS
  3. METHOTREXATE [Concomitant]
     Indication: RHEUMATOID ARTHRITIS
     Dates: end: 20050101
  4. ARAVA [Concomitant]
     Indication: RHEUMATOID ARTHRITIS
  5. CALCIGRAN FORTE [Concomitant]
     Indication: RHEUMATOID ARTHRITIS

REACTIONS (8)
  - ASTHENIA [None]
  - QUALITY OF LIFE DECREASED [None]
  - AMNESIA [None]
  - VISUAL ACUITY REDUCED [None]
  - SOCIAL PHOBIA [None]
  - HYPOACUSIS [None]
  - FEELING ABNORMAL [None]
  - BALANCE DISORDER [None]
